FAERS Safety Report 21831818 (Version 2)
Quarter: 2023Q1

REPORT INFORMATION
  Report Type: Spontaneous
  Country: US (occurrence: US)
  Receive Date: 20230106
  Receipt Date: 20230111
  Transmission Date: 20230418
  Serious: No
  Sender: FDA-Public Use
  Company Number: US-GLAND PHARMA LIMITED-2022US002365

PATIENT

DRUGS (2)
  1. FLUOROURACIL [Suspect]
     Active Substance: FLUOROURACIL
     Indication: Product used for unknown indication
     Dosage: UNK
     Route: 042
  2. FLUOROURACIL [Suspect]
     Active Substance: FLUOROURACIL
     Dosage: UNK
     Route: 042

REACTIONS (2)
  - Incorrect dose administered by device [Unknown]
  - Device infusion issue [Unknown]
